FAERS Safety Report 7779245-9 (Version None)
Quarter: 2011Q3

REPORT INFORMATION
  Report Type: 
  Country: None (occurrence: None)
  Receive Date: 20110926
  Receipt Date: 20110916
  Transmission Date: 20111222
  Serious: Yes (Hospitalization)
  Sender: FDA-Public Use
  Company Number: US-ASTRAZENECA-2011SE38760

PATIENT
  Age: 38 Year
  Sex: Male
  Weight: 79.4 kg

DRUGS (14)
  1. SEROQUEL [Suspect]
     Indication: BIPOLAR DISORDER
     Route: 048
     Dates: start: 20000101
  2. SEROQUEL [Suspect]
     Route: 048
     Dates: start: 20080101
  3. KLONOPIN [Concomitant]
  4. LITHIUM [Concomitant]
  5. SEROQUEL [Suspect]
     Indication: SCHIZOPHRENIA
     Route: 048
     Dates: start: 20000101
  6. METHOCARBAMOL [Concomitant]
  7. TRAZODONE HCL [Concomitant]
  8. CYMBALTA [Concomitant]
  9. SEROQUEL [Suspect]
     Route: 048
     Dates: start: 20080101
  10. ZOLOFT [Concomitant]
  11. SEROQUEL [Suspect]
     Route: 048
     Dates: start: 20080101
  12. SEROQUEL [Suspect]
     Route: 048
     Dates: start: 20080101
  13. LAMICTAL [Concomitant]
  14. CLONIPINE [Concomitant]

REACTIONS (7)
  - MANIA [None]
  - TREMOR [None]
  - AGRAPHIA [None]
  - DRUG DOSE OMISSION [None]
  - DRUG PRESCRIBING ERROR [None]
  - MALAISE [None]
  - INSOMNIA [None]
